FAERS Safety Report 8906176 (Version 1)
Quarter: 2012Q4

REPORT INFORMATION
  Report Type: 
  Country: DK (occurrence: None)
  Receive Date: 20121109
  Receipt Date: 20121109
  Transmission Date: 20130627
  Serious: Yes (Death, Other)
  Sender: FDA-Public Use
  Company Number: 2012MA012947

PATIENT
  Age: 58 Year
  Sex: Male

DRUGS (2)
  1. GEMCITABINE HYDROCHLORIDE [Suspect]
     Indication: LUNG ADENOCARCINOMA STAGE IV
  2. CISPLATIN [Suspect]
     Indication: LUNG ADENOCARCINOMA STAGE IV
     Dosage: 100 mg/m**2; qd

REACTIONS (5)
  - Febrile neutropenia [None]
  - Thrombocytopenia [None]
  - Haematotoxicity [None]
  - Lung adenocarcinoma stage IV [None]
  - Malignant neoplasm progression [None]
